FAERS Safety Report 19392496 (Version 1)
Quarter: 2021Q2

REPORT INFORMATION
  Report Type: Spontaneous
  Country: CN (occurrence: CN)
  Receive Date: 20210608
  Receipt Date: 20210608
  Transmission Date: 20210717
  Serious: Yes (Hospitalization)
  Sender: FDA-Public Use
  Company Number: CN-BAXTER-2021BAX014614

PATIENT
  Age: 65 Year
  Sex: Male
  Weight: 65 kg

DRUGS (9)
  1. ENDOXAN [Suspect]
     Active Substance: CYCLOPHOSPHAMIDE
     Dosage: DOSE REINTRODUCED, DOCETAXEL + CYCLOPHOSPHAMIDE + 0.9% NS
     Route: 041
  2. DOCETAXEL. [Suspect]
     Active Substance: DOCETAXEL
     Indication: BREAST CANCER MALE
     Dosage: DOCETAXEL 120 MG + CYCLOPHOSPHAMIDE 1G + 0.9% NS 500ML, FIRST CYCLE OF CHEMOTHERAPY
     Route: 041
     Dates: start: 20210513, end: 20210517
  3. FAMOTIDINE. [Concomitant]
     Active Substance: FAMOTIDINE
     Indication: PROPHYLAXIS
     Dosage: FAMOTIDINE 40 MG + 0.9 % NS 200ML
     Route: 065
     Dates: start: 20210513
  4. ENDOXAN [Suspect]
     Active Substance: CYCLOPHOSPHAMIDE
     Indication: BREAST CANCER MALE
     Dosage: DOCETAXEL 120 MG + CYCLOPHOSPHAMIDE 1G + 0.9% NS 500ML, FIRST CYCLE OF CHEMOTHERAPY
     Route: 041
     Dates: start: 20210513, end: 20210517
  5. 0.9% SODIUM CHLORIDE INJECTION [Suspect]
     Active Substance: SODIUM CHLORIDE
     Indication: MEDICATION DILUTION
     Dosage: DOCETAXEL 120 MG + CYCLOPHOSPHAMIDE 1G + 0.9% NS 500ML, FIRST CYCLE OF CHEMOTHERAPY
     Route: 041
     Dates: start: 20210513, end: 20210517
  6. DOCETAXEL. [Suspect]
     Active Substance: DOCETAXEL
     Dosage: DOSE REINTRODUCED, DOCETAXEL + CYCLOPHOSPHAMIDE + 0.9% NS
     Route: 041
  7. SODIUM CHLORIDE. [Concomitant]
     Active Substance: SODIUM CHLORIDE
     Indication: MEDICATION DILUTION
     Dosage: FAMOTIDINE 40 MG + 0.9 % NS 200ML
     Route: 065
     Dates: start: 20210513
  8. 0.9% SODIUM CHLORIDE INJECTION [Suspect]
     Active Substance: SODIUM CHLORIDE
     Dosage: DOSE REINTRODUCED, DOCETAXEL + CYCLOPHOSPHAMIDE + 0.9% NS
     Route: 041
  9. ONDANSETRON HYDROCHLORIDE. [Concomitant]
     Active Substance: ONDANSETRON HYDROCHLORIDE
     Indication: ANTIEMETIC SUPPORTIVE CARE
     Dosage: TABLETS
     Route: 065
     Dates: start: 20210513

REACTIONS (6)
  - Hiccups [Unknown]
  - Pyrexia [Recovering/Resolving]
  - Asthenia [Recovering/Resolving]
  - Regurgitation [Unknown]
  - Temperature intolerance [Recovering/Resolving]
  - Myelosuppression [Recovering/Resolving]

NARRATIVE: CASE EVENT DATE: 202105
